FAERS Safety Report 10035875 (Version 1)
Quarter: 2014Q1

REPORT INFORMATION
  Report Type: Spontaneous
  Country: CN (occurrence: CN)
  Receive Date: 20140325
  Receipt Date: 20140325
  Transmission Date: 20141002
  Serious: Yes (Other)
  Sender: FDA-Public Use
  Company Number: CN-PFIZER INC-2014084063

PATIENT
  Sex: Male

DRUGS (1)
  1. CORDARONE [Suspect]
     Dosage: 200 MG, DAILY
     Route: 048
     Dates: start: 201301

REACTIONS (2)
  - Electrocardiogram Q wave abnormal [Not Recovered/Not Resolved]
  - Fatigue [Unknown]
